FAERS Safety Report 5162176-0 (Version None)
Quarter: 2006Q4

REPORT INFORMATION
  Report Type: 
  Country: None (occurrence: None)
  Receive Date: 20061121
  Receipt Date: 20061108
  Transmission Date: 20070319
  Serious: Yes (Other)
  Sender: FDA-Public Use
  Company Number: 2006BH014334

PATIENT
  Age: 26 Year
  Sex: Female
  Weight: 79.4 kg

DRUGS (1)
  1. LACTATED RINGER'S [Suspect]
     Indication: CAESAREAN SECTION
     Dosage: 125 ML; EVERY HR; IV
     Route: 042
     Dates: start: 20061019, end: 20061019

REACTIONS (3)
  - COUGH [None]
  - SENSE OF OPPRESSION [None]
  - THROAT IRRITATION [None]
